FAERS Safety Report 14322521 (Version 1)
Quarter: 2017Q4

REPORT INFORMATION
  Report Type: Spontaneous
  Country: GR (occurrence: GR)
  Receive Date: 20171225
  Receipt Date: 20171225
  Transmission Date: 20180321
  Serious: Yes (Life-Threatening, Other)
  Sender: FDA-Public Use
  Company Number: GR-GLAXOSMITHKLINE-GR2017197968

PATIENT
  Age: 71 Year
  Sex: Male
  Weight: 95 kg

DRUGS (4)
  1. LUMAREN [Concomitant]
     Indication: PRODUCT USED FOR UNKNOWN INDICATION
     Dosage: 1 DF, QD
     Route: 065
     Dates: start: 20171017
  2. ZEFFIX [Suspect]
     Active Substance: LAMIVUDINE
     Indication: HEPATITIS
     Dosage: 1 DF, QD
     Route: 048
     Dates: start: 20171017
  3. MEDROL [Concomitant]
     Active Substance: METHYLPREDNISOLONE
     Indication: HODGKIN^S DISEASE
     Dosage: 1 DF, QD
     Route: 065
     Dates: start: 20171017
  4. ZYLAPOUR [Concomitant]
     Indication: PRODUCT USED FOR UNKNOWN INDICATION
     Dosage: 300 MG, QD
     Route: 065
     Dates: start: 20171017

REACTIONS (1)
  - Thrombosis [Recovered/Resolved]
